FAERS Safety Report 18424177 (Version 1)
Quarter: 2020Q4

REPORT INFORMATION
  Report Type: Spontaneous
  Country: US (occurrence: US)
  Receive Date: 20201026
  Receipt Date: 20201026
  Transmission Date: 20210114
  Serious: Yes (Death, Life-Threatening, Hospitalization)
  Sender: FDA-Public Use
  Company Number: US-CELLTRION INC.-2020US029510

PATIENT

DRUGS (10)
  1. CETIRIZINE [Concomitant]
     Active Substance: CETIRIZINE HYDROCHLORIDE
  2. GLIPIZIDE. [Concomitant]
     Active Substance: GLIPIZIDE
  3. OMEPRAZOLE. [Concomitant]
     Active Substance: OMEPRAZOLE
  4. BENDAMUSTINE [Suspect]
     Active Substance: BENDAMUSTINE
     Indication: DIFFUSE LARGE B-CELL LYMPHOMA
     Dosage: UNK
  5. RANITIDINE. [Concomitant]
     Active Substance: RANITIDINE
  6. POLIVY [Suspect]
     Active Substance: POLATUZUMAB VEDOTIN-PIIQ
     Indication: DIFFUSE LARGE B-CELL LYMPHOMA
     Dosage: UNK
  7. FUROSEMIDE. [Concomitant]
     Active Substance: FUROSEMIDE
  8. HUMALOG [Concomitant]
     Active Substance: INSULIN LISPRO
  9. RITUXIMAB (UNKNOWN) [Suspect]
     Active Substance: RITUXIMAB
     Indication: DIFFUSE LARGE B-CELL LYMPHOMA
     Dosage: UNK
  10. METOPROLOL. [Concomitant]
     Active Substance: METOPROLOL

REACTIONS (6)
  - Multiple organ dysfunction syndrome [Unknown]
  - Pancreatitis acute [Unknown]
  - Varicella zoster virus infection [Unknown]
  - Acute respiratory distress syndrome [Fatal]
  - Atrial fibrillation [Unknown]
  - Pancytopenia [Unknown]
